FAERS Safety Report 4813980-7 (Version None)
Quarter: 2005Q4

REPORT INFORMATION
  Report Type: 
  Country: None (occurrence: None)
  Receive Date: 20051028
  Receipt Date: 20041220
  Transmission Date: 20060501
  Serious: No
  Sender: FDA-Public Use
  Company Number: US-GLAXOSMITHKLINE-A0538028A

PATIENT
  Age: 48 Year
  Sex: Female
  Weight: 74.5 kg

DRUGS (5)
  1. SEREVENT [Suspect]
     Indication: ASTHMA
     Dosage: 50MCG TWICE PER DAY
     Route: 055
  2. CLARITIN-D [Concomitant]
     Route: 048
  3. ACCOLATE [Concomitant]
     Indication: ASTHMA
     Dosage: 20MG TWICE PER DAY
     Route: 065
     Dates: start: 20000101
  4. PROVENTIL [Concomitant]
     Route: 065
     Dates: start: 20000101
  5. ITRACONAZOLE [Concomitant]
     Indication: INTRANASAL FUNGAL INFECTION
     Route: 065

REACTIONS (1)
  - HEART RATE INCREASED [None]
